FAERS Safety Report 16614717 (Version 2)
Quarter: 2019Q3

REPORT INFORMATION
  Report Type: Spontaneous
  Country: US (occurrence: US)
  Receive Date: 20190723
  Receipt Date: 20190916
  Transmission Date: 20191004
  Serious: No
  Sender: FDA-Public Use
  Company Number: US-GLAXOSMITHKLINE-US2019131696

PATIENT
  Age: 61 Year
  Sex: Female

DRUGS (4)
  1. COREG [Suspect]
     Active Substance: CARVEDILOL
     Indication: CARDIAC FAILURE
     Dosage: 25 MG, BID
  2. COREG CR [Suspect]
     Active Substance: CARVEDILOL PHOSPHATE
     Indication: CARDIOMEGALY
  3. COREG [Suspect]
     Active Substance: CARVEDILOL
     Indication: CARDIOMEGALY
     Dosage: 12.5 MG, BID
     Route: 048
  4. COREG CR [Suspect]
     Active Substance: CARVEDILOL PHOSPHATE
     Indication: CARDIAC FAILURE
     Dosage: 40 MG, QD
     Route: 065

REACTIONS (13)
  - Flushing [Unknown]
  - Respiratory tract congestion [Unknown]
  - Swelling [Unknown]
  - Palpitations [Unknown]
  - Quality of life decreased [Unknown]
  - Dyspnoea [Unknown]
  - Asthenia [Unknown]
  - Tremor [Unknown]
  - Hyperhidrosis [Unknown]
  - Abdominal distension [Unknown]
  - Panic attack [Unknown]
  - Arthropod bite [Unknown]
  - Overdose [Unknown]

NARRATIVE: CASE EVENT DATE: 20190905
